FAERS Safety Report 5955381-4 (Version None)
Quarter: 2008Q4

REPORT INFORMATION
  Report Type: 
  Country: None (occurrence: None)
  Receive Date: 20081117
  Receipt Date: 20081110
  Transmission Date: 20090506
  Serious: Yes (Hospitalization)
  Sender: FDA-Public Use
  Company Number: US-ASTRAZENECA-2008UW25302

PATIENT
  Age: 67 Year
  Sex: Female

DRUGS (5)
  1. SEROQUEL [Suspect]
     Indication: HALLUCINATION
     Route: 048
     Dates: start: 20081001, end: 20081001
  2. SEROQUEL [Suspect]
     Indication: CRYING
     Route: 048
     Dates: start: 20081001, end: 20081001
  3. SEROQUEL [Suspect]
     Indication: ABNORMAL BEHAVIOUR
     Route: 048
     Dates: start: 20081001, end: 20081001
  4. SEROQUEL [Suspect]
     Indication: INSOMNIA
     Route: 048
     Dates: start: 20081001, end: 20081001
  5. BETASERON [Suspect]
     Indication: MULTIPLE SCLEROSIS
     Dosage: 8 MIU EVERY OTHER DAY
     Route: 058
     Dates: start: 20061208

REACTIONS (5)
  - BRUXISM [None]
  - INCOHERENT [None]
  - MUSCULOSKELETAL STIFFNESS [None]
  - TONGUE DISORDER [None]
  - URINARY TRACT INFECTION [None]
